FAERS Safety Report 7909770-9 (Version None)
Quarter: 2011Q4

REPORT INFORMATION
  Report Type: 
  Country: None (occurrence: None)
  Receive Date: 20111111
  Receipt Date: 20111107
  Transmission Date: 20120403
  Serious: Yes (Hospitalization, Other)
  Sender: FDA-Public Use
  Company Number: US-PFIZER INC-2011222460

PATIENT
  Sex: Female
  Weight: 41.7 kg

DRUGS (8)
  1. LYRICA [Suspect]
     Indication: NEUROPATHY PERIPHERAL
     Dosage: UNK
     Route: 048
     Dates: start: 20071205
  2. ATIVAN [Concomitant]
     Dosage: UNK
  3. LYRICA [Suspect]
     Dosage: 200 MG, UNK
     Route: 048
     Dates: start: 20080324
  4. LYRICA [Suspect]
     Indication: SURGERY
     Dosage: 100 MG, UNK
     Route: 048
     Dates: start: 20071226
  5. ZOLOFT [Concomitant]
     Dosage: UNK
  6. LORTAB [Concomitant]
     Indication: PAIN
     Dosage: 10 MG, 4X/DAY
  7. CLONAZEPAM [Concomitant]
     Dosage: UNK
  8. LYRICA [Suspect]
     Indication: NERVE INJURY
     Dosage: 200 MG, 2X/DAY
     Route: 048
     Dates: start: 20020101, end: 20101011

REACTIONS (26)
  - CONVULSION [None]
  - IMPAIRED DRIVING ABILITY [None]
  - ALOPECIA [None]
  - METAL POISONING [None]
  - GAIT DISTURBANCE [None]
  - MUSCULAR WEAKNESS [None]
  - WEIGHT DECREASED [None]
  - DIZZINESS [None]
  - HEADACHE [None]
  - CEREBROVASCULAR ACCIDENT [None]
  - RHEUMATOID ARTHRITIS [None]
  - VISUAL ACUITY REDUCED [None]
  - LOSS OF CONSCIOUSNESS [None]
  - MUSCLE ATROPHY [None]
  - NAUSEA [None]
  - SKIN LESION [None]
  - INSOMNIA [None]
  - SYSTEMIC LUPUS ERYTHEMATOSUS [None]
  - BLOOD PRESSURE DECREASED [None]
  - TREMOR [None]
  - SOMNOLENCE [None]
  - ANXIETY [None]
  - MENTAL IMPAIRMENT [None]
  - SPEECH DISORDER [None]
  - DEPRESSION [None]
  - DECREASED APPETITE [None]
